FAERS Safety Report 23747898 (Version 2)
Quarter: 2024Q2

REPORT INFORMATION
  Report Type: Spontaneous
  Country: FR (occurrence: FR)
  Receive Date: 20240416
  Receipt Date: 20240604
  Transmission Date: 20240715
  Serious: Yes (Other)
  Sender: FDA-Public Use
  Company Number: None

PATIENT
  Age: 32 Year
  Sex: Female

DRUGS (4)
  1. VINCRISTINE SULFATE [Suspect]
     Active Substance: VINCRISTINE SULFATE
     Indication: Brain neoplasm
     Dosage: 1.4 MG/M2 (PROTOCOL PCV : C1D8, C1D29, C2D8)
     Route: 042
     Dates: start: 20231117, end: 20240109
  2. KEPPRA [Suspect]
     Active Substance: LEVETIRACETAM
     Indication: Epilepsy
     Dosage: 750 MG, 2X/DAY
     Route: 048
     Dates: start: 202305
  3. PROCARBAZINE [Suspect]
     Active Substance: PROCARBAZINE
     Indication: Brain neoplasm
     Dosage: 60 MG/M2 (PROTOCOL PCV ; C1D8 AT D21, C2D8 AT D21)
     Route: 048
     Dates: start: 20231117, end: 20240121
  4. LOMUSTINE [Suspect]
     Active Substance: LOMUSTINE
     Indication: Brain neoplasm
     Dosage: 110 MG/M2, CYCLIC (PROTOCOL PCV ; C1 ON 09NOV2023, C2 ON 02JAN2024)
     Route: 048
     Dates: start: 20231109, end: 20240102

REACTIONS (2)
  - Cholestasis [Not Recovered/Not Resolved]
  - Hepatic cytolysis [Not Recovered/Not Resolved]

NARRATIVE: CASE EVENT DATE: 20240130
